FAERS Safety Report 18031937 (Version 1)
Quarter: 2020Q3

REPORT INFORMATION
  Report Type: Report from Study
  Country: JP (occurrence: JP)
  Receive Date: 20200716
  Receipt Date: 20200716
  Transmission Date: 20201103
  Serious: Yes (Death)
  Sender: FDA-Public Use
  Company Number: JP-PFIZER INC-2020271163

PATIENT

DRUGS (3)
  1. GEMCITABINE HYDROCHLORIDE. [Suspect]
     Active Substance: GEMCITABINE HYDROCHLORIDE
     Indication: GERM CELL CANCER METASTATIC
     Dosage: 800 MG/M2 ON DAYS 1 AND 8, EVERY 3 WEEKS
     Route: 042
  2. PACLITAXEL. [Suspect]
     Active Substance: PACLITAXEL
     Indication: GERM CELL CANCER METASTATIC
     Dosage: 80 MG/M2, ON DAYS 1 AND 8, EVERY 3 WEEKS
     Route: 042
  3. CISPLATIN. [Suspect]
     Active Substance: CISPLATIN
     Indication: GERM CELL CANCER METASTATIC
     Dosage: 50 MG/M2, ON DAYS 1 AND 8, EVERY 3 WEEKS
     Route: 042

REACTIONS (2)
  - Second primary malignancy [Fatal]
  - Leukaemia [Fatal]
